FAERS Safety Report 16916038 (Version 1)
Quarter: 2019Q4

REPORT INFORMATION
  Report Type: Spontaneous
  Country: FR (occurrence: FR)
  Receive Date: 20191014
  Receipt Date: 20191014
  Transmission Date: 20200122
  Serious: Yes (Hospitalization)
  Sender: FDA-Public Use
  Company Number: FR-009507513-1910FRA007038

PATIENT
  Age: 32 Year
  Sex: Female
  Weight: 146 kg

DRUGS (1)
  1. CELESTENE 4MG/1ML [Suspect]
     Active Substance: BETAMETHASONE
     Indication: FOETAL GROWTH RESTRICTION
     Dosage: 12 MILLIGRAM, QD
     Route: 051
     Dates: start: 20180915, end: 20180916

REACTIONS (2)
  - Condition aggravated [Recovered/Resolved]
  - Diabetes mellitus [Recovered/Resolved]

NARRATIVE: CASE EVENT DATE: 20180915
